FAERS Safety Report 15857395 (Version 1)
Quarter: 2019Q1

REPORT INFORMATION
  Report Type: Spontaneous
  Country: US (occurrence: US)
  Receive Date: 20190122
  Receipt Date: 20190122
  Transmission Date: 20190417
  Serious: Yes (Disabling, Other)
  Sender: FDA-Public Use
  Company Number: None

PATIENT
  Age: 55 Year
  Sex: Female
  Weight: 90 kg

DRUGS (5)
  1. PROZAC [Concomitant]
     Active Substance: FLUOXETINE HYDROCHLORIDE
  2. RITALIN [Concomitant]
     Active Substance: METHYLPHENIDATE HYDROCHLORIDE
  3. DEPLIN I METHYLFOLATE [Concomitant]
  4. SUN BUM SUNSCREEN LIP BALM BROAD SPECTRUM SPF 30 MANGO [Suspect]
     Active Substance: AVOBENZONE\HOMOSALATE\OCTINOXATE\OCTISALATE
     Indication: DRY SKIN PROPHYLAXIS
     Dosage: ?          OTHER STRENGTH:SPF 30;?
     Route: 061
     Dates: start: 20190113, end: 20190113
  5. BUPROPRION [Concomitant]
     Active Substance: BUPROPION

REACTIONS (4)
  - Mouth swelling [None]
  - Swelling face [None]
  - Oral pruritus [None]
  - Lip pruritus [None]

NARRATIVE: CASE EVENT DATE: 20190113
